FAERS Safety Report 20724097 (Version 1)
Quarter: 2022Q2

REPORT INFORMATION
  Report Type: Spontaneous
  Country: IT (occurrence: IT)
  Receive Date: 20220419
  Receipt Date: 20220419
  Transmission Date: 20220721
  Serious: Yes (Disabling, Other)
  Sender: FDA-Public Use
  Company Number: IT-MLMSERVICE-20220407-3490252-1

PATIENT
  Sex: Male

DRUGS (3)
  1. CARBOPLATIN [Suspect]
     Active Substance: CARBOPLATIN
     Indication: Oropharyngeal squamous cell carcinoma
     Dosage: AREA UNDER THE CURVE 4
     Dates: start: 201808, end: 2018
  2. FLUOROURACIL [Suspect]
     Active Substance: FLUOROURACIL
     Indication: Oropharyngeal squamous cell carcinoma
     Dosage: 4000 MG/MQ IN 120 H EVERY 3 WEEKS
     Dates: start: 201808, end: 2018
  3. CETUXIMAB [Suspect]
     Active Substance: CETUXIMAB
     Indication: Oropharyngeal squamous cell carcinoma
     Dosage: WEEKLY
     Dates: start: 201808, end: 2018

REACTIONS (4)
  - Neutropenia [Unknown]
  - Major depression [Unknown]
  - Skin toxicity [Unknown]
  - Off label use [Unknown]

NARRATIVE: CASE EVENT DATE: 20180101
